FAERS Safety Report 6358933-5 (Version None)
Quarter: 2009Q3

REPORT INFORMATION
  Report Type: 
  Country: None (occurrence: None)
  Receive Date: 20090914
  Receipt Date: 20090907
  Transmission Date: 20100115
  Serious: Yes (Other)
  Sender: FDA-Public Use
  Company Number: CIP09002509

PATIENT
  Age: 69 Year
  Sex: Female

DRUGS (6)
  1. ACTONEL [Suspect]
     Dosage: 35 MG, ORAL
     Route: 048
     Dates: start: 20080701, end: 20090801
  2. CO-APROVEL (HYDROCHLOROTHIAZIDE, IRBESARTAN) [Concomitant]
  3. PRAVACHOL [Concomitant]
  4. SALOSPIR /00002701/(ACETYLSALICYLIC ACID) [Concomitant]
  5. THYROX (LEVOTHYROXINE SODIUM) [Concomitant]
  6. SYMBICORT [Concomitant]

REACTIONS (6)
  - ABDOMINAL PAIN [None]
  - ASTHENIA [None]
  - BRADYARRHYTHMIA [None]
  - CHEST DISCOMFORT [None]
  - DYSPHORIA [None]
  - HYPOTENSION [None]
